FAERS Safety Report 9049793 (Version 1)
Quarter: 2013Q1

REPORT INFORMATION
  Report Type: Spontaneous
  Country: ES (occurrence: ES)
  Receive Date: 20130205
  Receipt Date: 20130205
  Transmission Date: 20140127
  Serious: Yes (Other)
  Sender: FDA-Public Use
  Company Number: ES-PFIZER INC-2013043584

PATIENT
  Age: 36 Year
  Sex: Female

DRUGS (6)
  1. TAZOCEL [Suspect]
     Indication: SKIN GRAFT INFECTION
     Dosage: 4 MG, 4X/DAY
     Route: 042
     Dates: start: 20120410, end: 20120426
  2. CEFAZOLIN [Concomitant]
     Indication: SKIN GRAFT INFECTION
     Dosage: 2 G, 3X/DAY
     Route: 042
     Dates: start: 20120410
  3. PANTOPRAZOLE [Concomitant]
     Indication: PROPHYLAXIS AGAINST GASTROINTESTINAL ULCER
     Dosage: 40 MG, 1X/DAY
     Route: 042
     Dates: start: 20120410
  4. ENANTYUM [Concomitant]
     Indication: PAIN
     Dosage: 100 MG/DAY
     Route: 042
     Dates: start: 20120410
  5. INYESPRIN [Concomitant]
     Indication: PAIN
     Dosage: UNK
     Route: 042
     Dates: start: 20120410
  6. NOLOTIL [Concomitant]
     Indication: PAIN
     Dosage: 8 G/DAY
     Route: 042
     Dates: start: 20120425, end: 20120503

REACTIONS (1)
  - Drug reaction with eosinophilia and systemic symptoms [Recovered/Resolved]
